FAERS Safety Report 10152599 (Version 2)
Quarter: 2014Q2

REPORT INFORMATION
  Report Type: Spontaneous
  Country: IT (occurrence: IT)
  Receive Date: 20140505
  Receipt Date: 20140505
  Transmission Date: 20141212
  Serious: Yes (Other)
  Sender: FDA-Public Use
  Company Number: IT-PFIZER INC-2014109850

PATIENT
  Sex: Female

DRUGS (6)
  1. NORVASC [Suspect]
     Indication: HYPERTENSION
     Dosage: 10 MG, DAILY
     Route: 064
     Dates: start: 20100121, end: 20140320
  2. OMEPRAZOLE [Concomitant]
     Dosage: 20 MG, UNK
     Route: 064
  3. CATAPRESAN [Concomitant]
     Dosage: 600 MG, UNK
     Route: 064
  4. EUTIROX [Concomitant]
     Route: 064
  5. NOVORAPID [Concomitant]
     Route: 064
  6. LEVEMIR [Concomitant]
     Route: 064

REACTIONS (2)
  - Maternal exposure during pregnancy [Recovered/Resolved]
  - Premature baby [Recovered/Resolved]
